FAERS Safety Report 4807019-7 (Version None)
Quarter: 2005Q4

REPORT INFORMATION
  Report Type: 
  Country: None (occurrence: None)
  Receive Date: 20051024
  Receipt Date: 20051013
  Transmission Date: 20060501
  Serious: Yes (Hospitalization)
  Sender: FDA-Public Use
  Company Number: US-KINGPHARMUSA00001-K200501355

PATIENT
  Age: 89 Year
  Sex: Male

DRUGS (3)
  1. ALTACE [Suspect]
     Indication: HYPERTENSION
     Route: 048
  2. CARVEDILOL [Concomitant]
  3. UNAT [Concomitant]

REACTIONS (4)
  - ACARODERMATITIS [None]
  - DRUG INEFFECTIVE [None]
  - PEMPHIGOID [None]
  - RASH [None]
